FAERS Safety Report 6353480-9 (Version None)
Quarter: 2009Q3

REPORT INFORMATION
  Report Type: 
  Country: None (occurrence: None)
  Receive Date: 20090912
  Receipt Date: 20090622
  Transmission Date: 20100115
  Serious: No
  Sender: FDA-Public Use
  Company Number: US-ABBOTT-08P-163-0470680-00

PATIENT
  Sex: Male
  Weight: 102.15 kg

DRUGS (9)
  1. HUMIRA [Suspect]
     Indication: CROHN'S DISEASE
     Dosage: 160 MG INITIALLY
     Route: 058
     Dates: start: 20080501, end: 20080501
  2. HUMIRA [Suspect]
     Route: 058
  3. HUMIRA [Suspect]
     Route: 058
  4. HUMIRA [Suspect]
     Route: 058
     Dates: start: 20080701
  5. MESALAZINE [Concomitant]
     Indication: CROHN'S DISEASE
     Dosage: 6 TABLETS-400MG EACH TWICE DAILY
     Route: 048
     Dates: start: 20040101
  6. PREDNISONE [Concomitant]
     Indication: STEROID THERAPY
     Dosage: 2-1MG TABLETS
     Route: 048
  7. CENTRUM [Concomitant]
     Indication: VITAMIN SUPPLEMENTATION
     Route: 048
  8. FOLIC ACID [Concomitant]
     Indication: VITAMIN SUPPLEMENTATION
     Route: 048
  9. CALCIUM MAGNESIUM ZINC [Concomitant]
     Indication: MINERAL SUPPLEMENTATION
     Dosage: 1000 MG OF CALCIUM, 500MG OF MAGNESIUM, 25 MG OF ZINC
     Route: 048

REACTIONS (2)
  - DRUG DELIVERY SYSTEM MALFUNCTION [None]
  - INJECTION SITE HAEMATOMA [None]
